FAERS Safety Report 24172040 (Version 5)
Quarter: 2025Q1

REPORT INFORMATION
  Report Type: Spontaneous
  Country: US (occurrence: US)
  Receive Date: 20240805
  Receipt Date: 20250307
  Transmission Date: 20250408
  Serious: Yes (Other)
  Sender: ENDO
  Company Number: US-ENDO USA, INC.-2024-001232

PATIENT
  Sex: Male

DRUGS (9)
  1. BUPRENORPHINE HYDROCHLORIDE [Suspect]
     Active Substance: BUPRENORPHINE HYDROCHLORIDE
     Indication: Pain
     Route: 065
  2. HYDROCODONE BITARTRATE AND ACETAMINOPHEN [Suspect]
     Active Substance: ACETAMINOPHEN\HYDROCODONE BITARTRATE
     Indication: Pain
     Route: 065
  3. ACETAMINOPHEN\OXYCODONE HYDROCHLORIDE [Suspect]
     Active Substance: ACETAMINOPHEN\OXYCODONE HYDROCHLORIDE
     Indication: Pain
     Route: 065
  4. PERCOCET [Suspect]
     Active Substance: ACETAMINOPHEN\OXYCODONE HYDROCHLORIDE
     Indication: Pain
     Route: 065
  5. TRAMADOL HYDROCHLORIDE [Suspect]
     Active Substance: TRAMADOL HYDROCHLORIDE
     Indication: Pain
     Route: 065
  6. METHADONE [Suspect]
     Active Substance: METHADONE HYDROCHLORIDE
     Indication: Pain
     Route: 065
  7. FENTANYL [Suspect]
     Active Substance: FENTANYL
     Indication: Pain
     Route: 065
  8. GUAIFENESIN\HYDROCODONE BITARTRATE [Suspect]
     Active Substance: GUAIFENESIN\HYDROCODONE BITARTRATE
     Indication: Pain
     Route: 065
  9. OPANA [Suspect]
     Active Substance: OXYMORPHONE HYDROCHLORIDE
     Indication: Pain
     Route: 065

REACTIONS (4)
  - Dependence [Recovered/Resolved]
  - Drug abuse [Recovered/Resolved]
  - Drug diversion [Recovered/Resolved]
  - Product prescribing issue [Recovered/Resolved]
